FAERS Safety Report 10749655 (Version 1)
Quarter: 2015Q1

REPORT INFORMATION
  Report Type: Spontaneous
  Country: US (occurrence: US)
  Receive Date: 20150129
  Receipt Date: 20150129
  Transmission Date: 20150721
  Serious: No
  Sender: FDA-Public Use
  Company Number: US-009507513-1501USA010011

PATIENT
  Age: 64 Year
  Sex: Male

DRUGS (1)
  1. PROVENTIL [Suspect]
     Active Substance: ALBUTEROL
     Indication: ASTHMA
     Dosage: AS NEEDED
     Route: 055
     Dates: start: 2001

REACTIONS (5)
  - Product quality issue [Unknown]
  - Animal scratch [Recovered/Resolved]
  - Psychosomatic disease [Not Recovered/Not Resolved]
  - Cough [Recovering/Resolving]
  - Expired product administered [Unknown]

NARRATIVE: CASE EVENT DATE: 20141219
